FAERS Safety Report 9954533 (Version 1)
Quarter: 2014Q1

REPORT INFORMATION
  Report Type: Report from Study
  Country: US (occurrence: US)
  Receive Date: 20140304
  Receipt Date: 20140304
  Transmission Date: 20141002
  Serious: No
  Sender: FDA-Public Use
  Company Number: US-ABBVIE-13P-163-1083317-00

PATIENT
  Age: 41 Year
  Sex: Male

DRUGS (11)
  1. HUMIRA [Suspect]
     Indication: PSORIASIS
     Dosage: LOADING DOSE
     Dates: start: 20130417, end: 20130417
  2. HUMIRA [Suspect]
     Dates: start: 20130425
  3. LANSOPRAZOLE [Concomitant]
     Indication: GASTROOESOPHAGEAL REFLUX DISEASE
  4. RISPERIDONE [Concomitant]
     Indication: AFFECTIVE DISORDER
  5. SERTRALINE [Concomitant]
     Indication: DEPRESSION
  6. LISINOPRIL [Concomitant]
     Indication: HYPERTENSION
  7. CYCLOBENZAPRINE [Concomitant]
     Indication: MUSCLE SPASMS
  8. KETOROLAC [Concomitant]
     Indication: ARTHRALGIA
  9. NAPROXEN [Concomitant]
     Indication: PAIN
  10. VENTOLIN [Concomitant]
     Indication: CHRONIC OBSTRUCTIVE PULMONARY DISEASE
     Dosage: INHALER
  11. UNKNOWN RESCUE INHALER [Concomitant]
     Indication: CHRONIC OBSTRUCTIVE PULMONARY DISEASE

REACTIONS (4)
  - Injection site pain [Not Recovered/Not Resolved]
  - Injection site swelling [Not Recovered/Not Resolved]
  - Injection site warmth [Not Recovered/Not Resolved]
  - Injection site erythema [Not Recovered/Not Resolved]
